FAERS Safety Report 26205906 (Version 1)
Quarter: 2025Q4

REPORT INFORMATION
  Report Type: Spontaneous
  Country: CA (occurrence: CA)
  Receive Date: 20251229
  Receipt Date: 20251229
  Transmission Date: 20260117
  Serious: Yes (Death, Life-Threatening, Hospitalization, Disabling, Congenital Anomaly, Other)
  Sender: Haleon PLC
  Company Number: CA-002147023-NVSC2022CA303229

PATIENT
  Age: 43 Year
  Sex: Female
  Weight: 70 kg

DRUGS (385)
  1. VOLTAREN ARTHRITIS PAIN [Suspect]
     Active Substance: DICLOFENAC SODIUM
     Indication: Product used for unknown indication
     Dosage: ROUTE: UNKNOWN
  2. VOLTAREN ARTHRITIS PAIN [Suspect]
     Active Substance: DICLOFENAC SODIUM
     Dosage: ROUTE: UNKNOWN
  3. CHLORHEXIDINE [Suspect]
     Active Substance: CHLORHEXIDINE
     Indication: Product used for unknown indication
  4. STELARA [Suspect]
     Active Substance: USTEKINUMAB
     Indication: Product used for unknown indication
     Dosage: UNK
  5. STELARA [Suspect]
     Active Substance: USTEKINUMAB
     Dosage: UNK
  6. STELARA [Suspect]
     Active Substance: USTEKINUMAB
     Dosage: UNK
  7. STELARA [Suspect]
     Active Substance: USTEKINUMAB
     Dosage: SOLUTION SUBCUTANEOUS
  8. STELARA [Suspect]
     Active Substance: USTEKINUMAB
     Dosage: UNK
  9. STELARA [Suspect]
     Active Substance: USTEKINUMAB
     Dosage: UNK
  10. FOLIC ACID [Suspect]
     Active Substance: FOLIC ACID
     Indication: Rheumatoid arthritis
     Dosage: 500 MG
  11. FOLIC ACID [Suspect]
     Active Substance: FOLIC ACID
     Dosage: 1 MG
  12. FOLIC ACID [Suspect]
     Active Substance: FOLIC ACID
     Dosage: 1 MG
  13. FOLIC ACID [Suspect]
     Active Substance: FOLIC ACID
     Dosage: 0.5 MG
  14. FOLIC ACID [Suspect]
     Active Substance: FOLIC ACID
     Dosage: 25 MG
  15. PREDNISONE [Suspect]
     Active Substance: PREDNISONE
     Indication: Rheumatoid arthritis
     Dosage: 7.5 MG
  16. PREDNISONE [Suspect]
     Active Substance: PREDNISONE
     Dosage: UNK
  17. PREDNISONE [Suspect]
     Active Substance: PREDNISONE
     Dosage: 5 MG
  18. PREDNISONE [Suspect]
     Active Substance: PREDNISONE
     Dosage: UNK (1 YEAR) (UNK, Q12MO)
  19. PREDNISONE [Suspect]
     Active Substance: PREDNISONE
     Dosage: UNK
  20. PREDNISONE [Suspect]
     Active Substance: PREDNISONE
     Dosage: 1 MG
  21. PREDNISONE [Suspect]
     Active Substance: PREDNISONE
     Dosage: UNK
  22. PREDNISONE [Suspect]
     Active Substance: PREDNISONE
     Dosage: UNK
  23. PREDNISONE [Suspect]
     Active Substance: PREDNISONE
     Dosage: UNK
  24. PREDNISONE [Suspect]
     Active Substance: PREDNISONE
     Dosage: UNK
  25. PREDNISONE [Suspect]
     Active Substance: PREDNISONE
     Dosage: UNK
  26. PREDNISONE [Suspect]
     Active Substance: PREDNISONE
     Dosage: UNK
  27. PREDNISONE [Suspect]
     Active Substance: PREDNISONE
     Dosage: UNK
  28. PREDNISONE [Suspect]
     Active Substance: PREDNISONE
     Dosage: UNK
  29. PREDNISONE [Suspect]
     Active Substance: PREDNISONE
     Dosage: UNK
  30. PREDNISONE [Suspect]
     Active Substance: PREDNISONE
     Dosage: UNK
  31. USTEKINUMAB [Suspect]
     Active Substance: USTEKINUMAB
     Indication: Product used for unknown indication
     Dosage: SOLUTION
  32. CIMZIA [Suspect]
     Active Substance: CERTOLIZUMAB PEGOL
     Indication: Product used for unknown indication
     Dosage: SOLUTION
  33. CIMZIA [Suspect]
     Active Substance: CERTOLIZUMAB PEGOL
     Indication: Rheumatoid arthritis
     Dosage: UNK
  34. CIMZIA [Suspect]
     Active Substance: CERTOLIZUMAB PEGOL
     Indication: Psoriasis
     Dosage: UNK
  35. CIMZIA [Suspect]
     Active Substance: CERTOLIZUMAB PEGOL
     Dosage: UNK
  36. CIMZIA [Suspect]
     Active Substance: CERTOLIZUMAB PEGOL
     Dosage: UNK
  37. CIMZIA [Suspect]
     Active Substance: CERTOLIZUMAB PEGOL
  38. CORTISONE ACETATE [Suspect]
     Active Substance: CORTISONE ACETATE
     Indication: Rheumatoid arthritis
     Dosage: UNK
  39. CORTISONE ACETATE [Suspect]
     Active Substance: CORTISONE ACETATE
     Dosage: UNK
  40. CORTISONE ACETATE [Suspect]
     Active Substance: CORTISONE ACETATE
     Dosage: UNK
  41. CORTISONE ACETATE [Suspect]
     Active Substance: CORTISONE ACETATE
     Dosage: UNK
  42. CORTISONE ACETATE [Suspect]
     Active Substance: CORTISONE ACETATE
     Dosage: UNK
  43. CORTISONE ACETATE [Suspect]
     Active Substance: CORTISONE ACETATE
     Dosage: UNK
  44. CORTISONE ACETATE [Suspect]
     Active Substance: CORTISONE ACETATE
     Dosage: UNK
  45. TOPICORT [Suspect]
     Active Substance: DESOXIMETASONE
     Indication: Product used for unknown indication
     Dosage: UNK
  46. NAPROXEN SODIUM [Suspect]
     Active Substance: NAPROXEN SODIUM
     Indication: Rheumatoid arthritis
     Dosage: UNK
  47. NAPROXEN SODIUM [Suspect]
     Active Substance: NAPROXEN SODIUM
     Dosage: 500 MG
  48. NAPROXEN SODIUM [Suspect]
     Active Substance: NAPROXEN SODIUM
     Dosage: 500 MG, BID
  49. NAPROXEN SODIUM [Suspect]
     Active Substance: NAPROXEN SODIUM
     Dosage: UNK
  50. NAPROXEN SODIUM [Suspect]
     Active Substance: NAPROXEN SODIUM
     Dosage: UNK
  51. NAPROXEN SODIUM [Suspect]
     Active Substance: NAPROXEN SODIUM
     Dosage: UNK
  52. NAPROXEN SODIUM [Suspect]
     Active Substance: NAPROXEN SODIUM
  53. NAPROXEN SODIUM [Suspect]
     Active Substance: NAPROXEN SODIUM
  54. PSEUDOEPHEDRINE HYDROCHLORIDE [Suspect]
     Active Substance: PSEUDOEPHEDRINE HYDROCHLORIDE
     Indication: Rheumatoid arthritis
     Dosage: UNK
  55. PSEUDOEPHEDRINE HYDROCHLORIDE [Suspect]
     Active Substance: PSEUDOEPHEDRINE HYDROCHLORIDE
     Dosage: 25 MG
  56. PSEUDOEPHEDRINE HYDROCHLORIDE [Suspect]
     Active Substance: PSEUDOEPHEDRINE HYDROCHLORIDE
     Dosage: 1 MG
  57. PSEUDOEPHEDRINE HYDROCHLORIDE [Suspect]
     Active Substance: PSEUDOEPHEDRINE HYDROCHLORIDE
     Dosage: 10 MG
  58. VITAMIN C [Suspect]
     Active Substance: ASCORBIC ACID
     Indication: Rheumatoid arthritis
     Dosage: UNK
  59. VITAMIN C [Suspect]
     Active Substance: ASCORBIC ACID
     Indication: Product used for unknown indication
     Dosage: UNK
  60. CELEBREX [Suspect]
     Active Substance: CELECOXIB
     Indication: Arthritis
     Dosage: UNK
  61. OXYCODONE [Suspect]
     Active Substance: OXYCODONE
     Indication: Product used for unknown indication
     Dosage: UNK
  62. OXYCODONE [Suspect]
     Active Substance: OXYCODONE
     Dosage: UNK (NOT SPECIFIED)
  63. OXYCODONE [Suspect]
     Active Substance: OXYCODONE
     Dosage: UNK
  64. OXYCODONE [Suspect]
     Active Substance: OXYCODONE
     Dosage: UNK
  65. OXYCODONE [Suspect]
     Active Substance: OXYCODONE
     Dosage: UNK
  66. OXYCODONE [Suspect]
     Active Substance: OXYCODONE
     Dosage: UNK
  67. SIMPONI [Suspect]
     Active Substance: GOLIMUMAB
     Indication: Product used for unknown indication
     Dosage: SOLUTION SUBCUTANEOUS
  68. OXYCODONE TEREPHTHALATE [Suspect]
     Active Substance: OXYCODONE TEREPHTHALATE
     Indication: Product used for unknown indication
     Dosage: UNK
  69. OXYCODONE TEREPHTHALATE [Suspect]
     Active Substance: OXYCODONE TEREPHTHALATE
     Dosage: UNK
  70. OXYCODONE TEREPHTHALATE [Suspect]
     Active Substance: OXYCODONE TEREPHTHALATE
     Dosage: UNK
  71. CALTRATE [Suspect]
     Active Substance: CALCIUM CARBONATE
     Indication: Rheumatoid arthritis
     Dosage: ROUTE: UNKNOWN
  72. CALTRATE [Suspect]
     Active Substance: CALCIUM CARBONATE
     Indication: Psoriatic arthropathy
  73. OTEZLA [Suspect]
     Active Substance: APREMILAST
     Indication: Product used for unknown indication
     Dosage: UNK
  74. ORENCIA [Suspect]
     Active Substance: ABATACEPT
     Indication: Rheumatoid arthritis
     Dosage: UNK
  75. ORENCIA [Suspect]
     Active Substance: ABATACEPT
     Dosage: UNK
  76. DEXAMETHASONE [Suspect]
     Active Substance: DEXAMETHASONE
     Indication: Product used for unknown indication
     Dosage: UNK
  77. DEXAMETHASONE [Suspect]
     Active Substance: DEXAMETHASONE
     Dosage: UNK
  78. DEXAMETHASONE [Suspect]
     Active Substance: DEXAMETHASONE
     Dosage: SOLUTION OPHTHALMIC
  79. PHTHALYLSULFATHIAZOLE [Suspect]
     Active Substance: PHTHALYLSULFATHIAZOLE
     Indication: Rheumatoid arthritis
     Dosage: UNK
  80. PHTHALYLSULFATHIAZOLE [Suspect]
     Active Substance: PHTHALYLSULFATHIAZOLE
     Dosage: UNK
  81. PHTHALYLSULFATHIAZOLE [Suspect]
     Active Substance: PHTHALYLSULFATHIAZOLE
     Dosage: UNK
  82. DICLOFENAC SODIUM [Suspect]
     Active Substance: DICLOFENAC SODIUM
     Indication: Product used for unknown indication
     Dosage: UNK
  83. TOCILIZUMAB [Suspect]
     Active Substance: TOCILIZUMAB
     Indication: Rheumatoid arthritis
     Dosage: UNK
  84. TOCILIZUMAB [Suspect]
     Active Substance: TOCILIZUMAB
     Dosage: UNK
  85. TOCILIZUMAB [Suspect]
     Active Substance: TOCILIZUMAB
     Dosage: UNK
  86. TOCILIZUMAB [Suspect]
     Active Substance: TOCILIZUMAB
     Dosage: UNK
  87. PREDNISONE [Suspect]
     Active Substance: PREDNISONE
     Indication: Rheumatoid arthritis
     Dosage: UNK
  88. PREDNISONE [Suspect]
     Active Substance: PREDNISONE
     Dosage: UNK
  89. PREDNISONE [Suspect]
     Active Substance: PREDNISONE
     Dosage: UNK
  90. PREDNISONE [Suspect]
     Active Substance: PREDNISONE
     Dosage: UNK
  91. CHLORAPREP [Suspect]
     Active Substance: CHLORHEXIDINE GLUCONATE\ISOPROPYL ALCOHOL
     Indication: Product used for unknown indication
     Dosage: FORM: SOLUTION?ROUTE: TOPICAL
  92. CHLORAPREP [Suspect]
     Active Substance: CHLORHEXIDINE GLUCONATE\ISOPROPYL ALCOHOL
     Dosage: FORM: SOLUTION
  93. CHLORAPREP [Suspect]
     Active Substance: CHLORHEXIDINE GLUCONATE\ISOPROPYL ALCOHOL
     Dosage: FORM: SOLUTION
  94. CALCIUM GLUBIONATE [Suspect]
     Active Substance: CALCIUM GLUBIONATE
     Indication: Product used for unknown indication
     Dosage: UNK
  95. CALCIUM GLUBIONATE [Suspect]
     Active Substance: CALCIUM GLUBIONATE
     Dosage: UNK
  96. CALCIUM GLUBIONATE [Suspect]
     Active Substance: CALCIUM GLUBIONATE
     Dosage: UNK
  97. CALCIUM GLUBIONATE [Suspect]
     Active Substance: CALCIUM GLUBIONATE
     Dosage: UNK
  98. CALCIUM GLUBIONATE [Suspect]
     Active Substance: CALCIUM GLUBIONATE
     Dosage: UNK
  99. CALCIUM GLUBIONATE [Suspect]
     Active Substance: CALCIUM GLUBIONATE
     Dosage: UNK
  100. CALCIUM GLUBIONATE [Suspect]
     Active Substance: CALCIUM GLUBIONATE
     Dosage: UNK
  101. HYDROXYCHLOROQUINE SULFATE [Suspect]
     Active Substance: HYDROXYCHLOROQUINE SULFATE
     Indication: Rheumatoid arthritis
     Dosage: UNK
  102. ALENDRONATE SODIUM [Suspect]
     Active Substance: ALENDRONATE SODIUM
     Indication: Rheumatoid arthritis
     Dosage: UNK
  103. ALENDRONATE SODIUM [Suspect]
     Active Substance: ALENDRONATE SODIUM
     Dosage: UNK
  104. ABATACEPT [Suspect]
     Active Substance: ABATACEPT
     Indication: Product used for unknown indication
     Dosage: UNK (NOT OTHERWISE SPECIFIED)
  105. ELBASVIR [Suspect]
     Active Substance: ELBASVIR
     Indication: Rheumatoid arthritis
     Dosage: UNK
  106. ELBASVIR [Suspect]
     Active Substance: ELBASVIR
     Dosage: UNK
  107. CETIRIZINE HYDROCHLORIDE [Suspect]
     Active Substance: CETIRIZINE HYDROCHLORIDE
     Indication: Rheumatoid arthritis
     Dosage: UNK
  108. GOLIMUMAB [Suspect]
     Active Substance: GOLIMUMAB
     Indication: Prostatic specific antigen
     Dosage: UNK
  109. GOLIMUMAB [Suspect]
     Active Substance: GOLIMUMAB
     Indication: Rheumatoid arthritis
     Dosage: UNK
  110. GOLIMUMAB [Suspect]
     Active Substance: GOLIMUMAB
     Dosage: UNK
  111. GOLIMUMAB [Suspect]
     Active Substance: GOLIMUMAB
     Dosage: UNK
  112. CETIRIZINE HYDROCHLORIDE\PSEUDOEPHEDRINE HYDROCHLORIDE [Suspect]
     Active Substance: CETIRIZINE HYDROCHLORIDE\PSEUDOEPHEDRINE HYDROCHLORIDE
     Indication: Rheumatoid arthritis
     Dosage: UNK
  113. CETIRIZINE HYDROCHLORIDE\PSEUDOEPHEDRINE HYDROCHLORIDE [Suspect]
     Active Substance: CETIRIZINE HYDROCHLORIDE\PSEUDOEPHEDRINE HYDROCHLORIDE
     Indication: Off label use
     Dosage: UNK
  114. CETIRIZINE HYDROCHLORIDE\PSEUDOEPHEDRINE HYDROCHLORIDE [Suspect]
     Active Substance: CETIRIZINE HYDROCHLORIDE\PSEUDOEPHEDRINE HYDROCHLORIDE
     Dosage: UNK
  115. HYDROCORTISONE [Suspect]
     Active Substance: HYDROCORTISONE
     Indication: Rheumatoid arthritis
     Dosage: UNK
  116. HYDROCORTISONE [Suspect]
     Active Substance: HYDROCORTISONE
     Dosage: UNK
  117. SIMPONI [Suspect]
     Active Substance: GOLIMUMAB
     Indication: Rheumatoid arthritis
     Dosage: SOLUTION
  118. METHOTREXATE [Suspect]
     Active Substance: METHOTREXATE
     Indication: Rheumatoid arthritis
     Dosage: INJECTION, USP
  119. METHOTREXATE [Suspect]
     Active Substance: METHOTREXATE
     Dosage: INJECTION, USP
  120. METHOTREXATE [Suspect]
     Active Substance: METHOTREXATE
     Dosage: INJECTION, USP
  121. HUMIRA [Suspect]
     Active Substance: ADALIMUMAB
     Indication: Rheumatoid arthritis
     Dosage: UNK
  122. HUMIRA [Suspect]
     Active Substance: ADALIMUMAB
     Dosage: 40 MG
  123. HUMIRA [Suspect]
     Active Substance: ADALIMUMAB
     Dosage: SOLUTION SUBCUTANEOUS
  124. HUMIRA [Suspect]
     Active Substance: ADALIMUMAB
     Dosage: UNK
  125. CELECOXIB [Suspect]
     Active Substance: CELECOXIB
     Indication: Product used for unknown indication
     Dosage: UNK
  126. CELECOXIB [Suspect]
     Active Substance: CELECOXIB
     Indication: Arthritis
     Dosage: UNK
  127. CELECOXIB [Suspect]
     Active Substance: CELECOXIB
     Dosage: UNK
  128. CELECOXIB [Suspect]
     Active Substance: CELECOXIB
     Dosage: 1 EVERY 1 DAYS
  129. CELECOXIB [Suspect]
     Active Substance: CELECOXIB
     Dosage: UNK
  130. BENZOCAINE (BENZOCAINE) [Suspect]
     Active Substance: BENZOCAINE
     Indication: Product used for unknown indication
     Dosage: UNK
  131. BENZOCAINE (BENZOCAINE) [Suspect]
     Active Substance: BENZOCAINE
     Dosage: UNK
  132. ORENCIA [Suspect]
     Active Substance: ABATACEPT
     Indication: Rheumatoid arthritis
     Dosage: 125 MG (1 WEEK) (125 MG, QW)
  133. ORENCIA [Suspect]
     Active Substance: ABATACEPT
     Dosage: 125 MG (1 WEEK) (125 MG, QW)
  134. ORENCIA [Suspect]
     Active Substance: ABATACEPT
     Dosage: UNK (NOT OTHERWISE SPECIFIED)
  135. ORENCIA [Suspect]
     Active Substance: ABATACEPT
  136. ORENCIA [Suspect]
     Active Substance: ABATACEPT
  137. ORENCIA [Suspect]
     Active Substance: ABATACEPT
     Dosage: UNK (NOT OTHERWISE SPECIFIED)
  138. ORENCIA [Suspect]
     Active Substance: ABATACEPT
     Dosage: UNK (NOT OTHERWISE SPECIFIED)
  139. ORENCIA [Suspect]
     Active Substance: ABATACEPT
     Dosage: UNK (NOT OTHERWISE SPECIFIED)
  140. MYCOPHENOLATE MOFETIL [Suspect]
     Active Substance: MYCOPHENOLATE MOFETIL
     Indication: Product used for unknown indication
     Dosage: UNK
  141. MYCOPHENOLATE MOFETIL [Suspect]
     Active Substance: MYCOPHENOLATE MOFETIL
     Dosage: UNK
  142. MYCOPHENOLATE MOFETIL [Suspect]
     Active Substance: MYCOPHENOLATE MOFETIL
     Dosage: UNK
  143. FLUMETHASONE PIVALATE [Suspect]
     Active Substance: FLUMETHASONE PIVALATE
     Indication: Product used for unknown indication
     Dosage: UNK
  144. FLUMETHASONE PIVALATE [Suspect]
     Active Substance: FLUMETHASONE PIVALATE
     Dosage: UNK
  145. FLUMETHASONE PIVALATE [Suspect]
     Active Substance: FLUMETHASONE PIVALATE
     Indication: Rheumatoid arthritis
     Dosage: UNK
  146. FLUMETHASONE PIVALATE [Suspect]
     Active Substance: FLUMETHASONE PIVALATE
     Indication: Product used for unknown indication
     Dosage: UNK
  147. FLUMETHASONE PIVALATE [Suspect]
     Active Substance: FLUMETHASONE PIVALATE
     Indication: Drug ineffective
     Dosage: UNK
  148. FLUMETHASONE PIVALATE [Suspect]
     Active Substance: FLUMETHASONE PIVALATE
     Dosage: UNK
  149. CETIRIZINE [Suspect]
     Active Substance: CETIRIZINE HYDROCHLORIDE
     Indication: Rheumatoid arthritis
     Dosage: UNK
  150. CETIRIZINE [Suspect]
     Active Substance: CETIRIZINE HYDROCHLORIDE
     Dosage: UNK
  151. CETIRIZINE [Suspect]
     Active Substance: CETIRIZINE HYDROCHLORIDE
     Dosage: UNK
  152. CETIRIZINE [Suspect]
     Active Substance: CETIRIZINE HYDROCHLORIDE
     Dosage: UNK
  153. CETIRIZINE [Suspect]
     Active Substance: CETIRIZINE HYDROCHLORIDE
     Dosage: UNK
  154. PANTOPRAZOLE [Suspect]
     Active Substance: PANTOPRAZOLE
     Indication: Product used for unknown indication
     Dosage: UNK
  155. SULFAMETHOXAZOLE [Suspect]
     Active Substance: SULFAMETHOXAZOLE
     Indication: Product used for unknown indication
     Dosage: UNK
  156. SULFAMETHOXAZOLE [Suspect]
     Active Substance: SULFAMETHOXAZOLE
     Dosage: UNK
  157. TOFACITINIB CITRATE [Suspect]
     Active Substance: TOFACITINIB CITRATE
     Indication: Rheumatoid arthritis
     Dosage: UNK
  158. ISOPROPYL ALCOHOL [Suspect]
     Active Substance: ISOPROPYL ALCOHOL
     Indication: Product used for unknown indication
     Dosage: UNK
  159. CETRIMONIUM BROMIDE [Suspect]
     Active Substance: CETRIMONIUM BROMIDE
     Indication: Product used for unknown indication
     Dosage: UNK
  160. CETRIMONIUM BROMIDE [Suspect]
     Active Substance: CETRIMONIUM BROMIDE
     Dosage: UNK
  161. CETRIMONIUM BROMIDE [Suspect]
     Active Substance: CETRIMONIUM BROMIDE
     Dosage: UNK
  162. CETRIMONIUM BROMIDE [Suspect]
     Active Substance: CETRIMONIUM BROMIDE
     Dosage: UNK
  163. CIMZIA [Suspect]
     Active Substance: CERTOLIZUMAB PEGOL
     Indication: Rheumatoid arthritis
     Dosage: UNK
  164. CIMZIA [Suspect]
     Active Substance: CERTOLIZUMAB PEGOL
     Indication: Psoriasis
     Dosage: 400 MG
  165. VITAMIN D3 [Suspect]
     Active Substance: CHOLECALCIFEROL
     Indication: Product used for unknown indication
     Dosage: UNK
  166. VITAMIN D3 [Suspect]
     Active Substance: CHOLECALCIFEROL
     Dosage: UNK
  167. VITAMIN D3 [Suspect]
     Active Substance: CHOLECALCIFEROL
     Dosage: UNK
  168. PERIOGARD [Suspect]
     Active Substance: CHLORHEXIDINE GLUCONATE
     Indication: Product used for unknown indication
     Dosage: UNK
  169. PERIOGARD [Suspect]
     Active Substance: CHLORHEXIDINE GLUCONATE
     Dosage: UNK
  170. PERIOGARD [Suspect]
     Active Substance: CHLORHEXIDINE GLUCONATE
     Dosage: UNK
  171. PERIOGARD [Suspect]
     Active Substance: CHLORHEXIDINE GLUCONATE
     Dosage: BUCCAL
  172. PERIOGARD [Suspect]
     Active Substance: CHLORHEXIDINE GLUCONATE
     Dosage: BUCCAL
  173. PERIOGARD [Suspect]
     Active Substance: CHLORHEXIDINE GLUCONATE
     Dosage: BUCCAL
  174. PANTOPRAZOLE SODIUM ANHYDROUS [Suspect]
     Active Substance: PANTOPRAZOLE SODIUM ANHYDROUS
     Indication: Product used for unknown indication
     Dosage: UNK
  175. PANTOPRAZOLE SODIUM ANHYDROUS [Suspect]
     Active Substance: PANTOPRAZOLE SODIUM ANHYDROUS
     Dosage: UNK
  176. PANTOPRAZOLE SODIUM ANHYDROUS [Suspect]
     Active Substance: PANTOPRAZOLE SODIUM ANHYDROUS
     Dosage: UNK
  177. PANTOPRAZOLE SODIUM ANHYDROUS [Suspect]
     Active Substance: PANTOPRAZOLE SODIUM ANHYDROUS
     Dosage: UNK
  178. PANTOPRAZOLE SODIUM ANHYDROUS [Suspect]
     Active Substance: PANTOPRAZOLE SODIUM ANHYDROUS
     Dosage: UNK
  179. PANTOPRAZOLE SODIUM ANHYDROUS [Suspect]
     Active Substance: PANTOPRAZOLE SODIUM ANHYDROUS
  180. DESOXIMETASONE [Suspect]
     Active Substance: DESOXIMETASONE
     Indication: Rheumatoid arthritis
     Dosage: UNK
  181. DESOXIMETASONE [Suspect]
     Active Substance: DESOXIMETASONE
     Dosage: UNK
  182. DESOXIMETASONE [Suspect]
     Active Substance: DESOXIMETASONE
     Dosage: UNK
  183. DESOXIMETASONE [Suspect]
     Active Substance: DESOXIMETASONE
     Dosage: 25 MG
  184. DESOXIMETASONE [Suspect]
     Active Substance: DESOXIMETASONE
     Dosage: UNK
  185. INFLIXIMAB [Suspect]
     Active Substance: INFLIXIMAB
     Indication: Rheumatoid arthritis
     Dosage: UNK
  186. INFLIXIMAB [Suspect]
     Active Substance: INFLIXIMAB
     Indication: Psoriatic arthropathy
     Dosage: UNK
  187. INFLIXIMAB [Suspect]
     Active Substance: INFLIXIMAB
     Dosage: UNK
  188. INFLIXIMAB [Suspect]
     Active Substance: INFLIXIMAB
     Dosage: UNK
  189. INFLIXIMAB [Suspect]
     Active Substance: INFLIXIMAB
     Dosage: UNK
  190. INFLIXIMAB [Suspect]
     Active Substance: INFLIXIMAB
     Dosage: UNK
  191. INFLIXIMAB [Suspect]
     Active Substance: INFLIXIMAB
     Dosage: UNK
  192. INFLIXIMAB [Suspect]
     Active Substance: INFLIXIMAB
     Dosage: UNK
  193. DOXYCYCLINE [Suspect]
     Active Substance: DOXYCYCLINE
     Indication: Product used for unknown indication
     Dosage: UNK
  194. DOXYCYCLINE [Suspect]
     Active Substance: DOXYCYCLINE
     Dosage: UNK
  195. PANTOPRAZOLE SODIUM [Suspect]
     Active Substance: PANTOPRAZOLE SODIUM
     Indication: Product used for unknown indication
     Dosage: UNK
  196. CETIRIZINE HYDROCHLORIDE\PSEUDOEPHEDRINE HYDROCHLORIDE [Suspect]
     Active Substance: CETIRIZINE HYDROCHLORIDE\PSEUDOEPHEDRINE HYDROCHLORIDE
     Indication: Rheumatoid arthritis
     Dosage: UNK
  197. CETIRIZINE HYDROCHLORIDE\PSEUDOEPHEDRINE HYDROCHLORIDE [Suspect]
     Active Substance: CETIRIZINE HYDROCHLORIDE\PSEUDOEPHEDRINE HYDROCHLORIDE
     Indication: Off label use
     Dosage: UNK
  198. CHLORHEXIDINE GLUCONATE [Suspect]
     Active Substance: CHLORHEXIDINE GLUCONATE
     Indication: Product used for unknown indication
     Dosage: UNK
  199. CHLORHEXIDINE GLUCONATE [Suspect]
     Active Substance: CHLORHEXIDINE GLUCONATE
     Dosage: UNK
  200. CHLORHEXIDINE GLUCONATE [Suspect]
     Active Substance: CHLORHEXIDINE GLUCONATE
     Dosage: UNK
  201. CHLORHEXIDINE GLUCONATE [Suspect]
     Active Substance: CHLORHEXIDINE GLUCONATE
     Dosage: UNK
  202. CHLORHEXIDINE GLUCONATE [Suspect]
     Active Substance: CHLORHEXIDINE GLUCONATE
     Dosage: UNK
  203. CHLORHEXIDINE GLUCONATE [Suspect]
     Active Substance: CHLORHEXIDINE GLUCONATE
     Dosage: UNK
  204. PLAQUENIL [Suspect]
     Active Substance: HYDROXYCHLOROQUINE SULFATE
     Indication: Rheumatoid arthritis
     Dosage: UNK
  205. SULFAMETHOXAZOLE\TRIMETHOPRIM [Suspect]
     Active Substance: SULFAMETHOXAZOLE\TRIMETHOPRIM
     Indication: Product used for unknown indication
     Dosage: UNK (NOT SPECIFIED)
  206. SULFAMETHOXAZOLE\TRIMETHOPRIM [Suspect]
     Active Substance: SULFAMETHOXAZOLE\TRIMETHOPRIM
     Dosage: UNK
  207. SULFAMETHOXAZOLE\TRIMETHOPRIM [Suspect]
     Active Substance: SULFAMETHOXAZOLE\TRIMETHOPRIM
     Dosage: UNK
  208. CORTISONE ACETATE [Suspect]
     Active Substance: CORTISONE ACETATE
     Indication: Rheumatoid arthritis
     Dosage: ROUTE: TOPICAL
  209. CORTISONE ACETATE [Suspect]
     Active Substance: CORTISONE ACETATE
     Dosage: UNK
  210. CORTISONE ACETATE [Suspect]
     Active Substance: CORTISONE ACETATE
     Dosage: 25 MG
  211. CORTISONE ACETATE [Suspect]
     Active Substance: CORTISONE ACETATE
     Dosage: UNK
  212. TUMS ULTRA [Suspect]
     Active Substance: CALCIUM CARBONATE
     Indication: Product used for unknown indication
     Dosage: ROUTE: UNKNOWN
  213. METHOTREXATE [Suspect]
     Active Substance: METHOTREXATE
     Indication: Rheumatoid arthritis
     Dosage: UNK
  214. METHOTREXATE [Suspect]
     Active Substance: METHOTREXATE
     Dosage: UNK
  215. METHOTREXATE [Suspect]
     Active Substance: METHOTREXATE
     Dosage: UNK
  216. RITUXIMAB [Suspect]
     Active Substance: RITUXIMAB
     Indication: Rheumatoid arthritis
     Dosage: UNK
  217. RITUXIMAB [Suspect]
     Active Substance: RITUXIMAB
     Dosage: UNK
  218. RITUXIMAB [Suspect]
     Active Substance: RITUXIMAB
     Dosage: UNK
  219. RITUXIMAB [Suspect]
     Active Substance: RITUXIMAB
     Dosage: UNK
  220. RITUXIMAB [Suspect]
     Active Substance: RITUXIMAB
     Dosage: UNK
  221. RITUXIMAB [Suspect]
     Active Substance: RITUXIMAB
     Dosage: UNK
  222. RITUXIMAB [Suspect]
     Active Substance: RITUXIMAB
     Dosage: UNK
  223. RITUXIMAB [Suspect]
     Active Substance: RITUXIMAB
     Dosage: UNK
  224. RITUXIMAB [Suspect]
     Active Substance: RITUXIMAB
     Dosage: UNK
  225. RITUXIMAB [Suspect]
     Active Substance: RITUXIMAB
     Dosage: UNK
  226. RITUXIMAB [Suspect]
     Active Substance: RITUXIMAB
     Dosage: UNK
  227. RITUXIMAB [Suspect]
     Active Substance: RITUXIMAB
     Dosage: UNK
  228. RITUXIMAB [Suspect]
     Active Substance: RITUXIMAB
     Dosage: UNK
  229. RITUXIMAB [Suspect]
     Active Substance: RITUXIMAB
     Dosage: UNK
  230. RITUXIMAB [Suspect]
     Active Substance: RITUXIMAB
     Dosage: UNK
  231. RITUXIMAB [Suspect]
     Active Substance: RITUXIMAB
     Dosage: UNK
  232. RITUXIMAB [Suspect]
     Active Substance: RITUXIMAB
     Dosage: UNK
  233. RITUXIMAB [Suspect]
     Active Substance: RITUXIMAB
     Dosage: UNK
  234. RITUXIMAB [Suspect]
     Active Substance: RITUXIMAB
     Dosage: UNK
  235. RITUXIMAB [Suspect]
     Active Substance: RITUXIMAB
     Dosage: UNK
  236. RITUXIMAB [Suspect]
     Active Substance: RITUXIMAB
     Dosage: UNK
  237. RITUXIMAB [Suspect]
     Active Substance: RITUXIMAB
     Dosage: UNK
  238. RITUXIMAB [Suspect]
     Active Substance: RITUXIMAB
     Dosage: UNK
  239. RITUXIMAB [Suspect]
     Active Substance: RITUXIMAB
     Dosage: UNK
  240. RITUXIMAB [Suspect]
     Active Substance: RITUXIMAB
     Dosage: UNK
  241. RITUXIMAB [Suspect]
     Active Substance: RITUXIMAB
     Dosage: UNK
  242. RITUXIMAB [Suspect]
     Active Substance: RITUXIMAB
     Dosage: UNK
  243. RITUXIMAB [Suspect]
     Active Substance: RITUXIMAB
     Dosage: UNK
  244. RITUXIMAB [Suspect]
     Active Substance: RITUXIMAB
     Dosage: UNK
  245. RITUXIMAB [Suspect]
     Active Substance: RITUXIMAB
     Dosage: UNK
  246. RITUXIMAB [Suspect]
     Active Substance: RITUXIMAB
     Dosage: UNK
  247. PSEUDOEPHEDRINE [Suspect]
     Active Substance: PSEUDOEPHEDRINE
     Indication: Rheumatoid arthritis
     Dosage: UNK
  248. PSEUDOEPHEDRINE [Suspect]
     Active Substance: PSEUDOEPHEDRINE
     Dosage: UNK
  249. PSEUDOEPHEDRINE [Suspect]
     Active Substance: PSEUDOEPHEDRINE
     Dosage: UNK
  250. PSEUDOEPHEDRINE [Suspect]
     Active Substance: PSEUDOEPHEDRINE
     Dosage: UNK
  251. ACETAMINOPHEN [Suspect]
     Active Substance: ACETAMINOPHEN
     Indication: Product used for unknown indication
     Dosage: UNK
  252. ACETAMINOPHEN [Suspect]
     Active Substance: ACETAMINOPHEN
     Indication: Rheumatoid arthritis
     Dosage: UNK
  253. CIMZIA [Suspect]
     Active Substance: CERTOLIZUMAB PEGOL
     Indication: Psoriasis
     Dosage: UNK
  254. CIMZIA [Suspect]
     Active Substance: CERTOLIZUMAB PEGOL
     Indication: Rheumatoid arthritis
  255. LEFLUNOMIDE [Suspect]
     Active Substance: LEFLUNOMIDE
     Indication: Rheumatoid arthritis
     Dosage: UNK
  256. LEFLUNOMIDE [Suspect]
     Active Substance: LEFLUNOMIDE
     Dosage: UNK
  257. LEFLUNOMIDE [Suspect]
     Active Substance: LEFLUNOMIDE
     Dosage: UNK
  258. REMICADE [Suspect]
     Active Substance: INFLIXIMAB
     Indication: Rheumatoid arthritis
     Dosage: UNK
  259. REMICADE [Suspect]
     Active Substance: INFLIXIMAB
     Dosage: UNK
  260. REMICADE [Suspect]
     Active Substance: INFLIXIMAB
     Dosage: UNK
  261. REMICADE [Suspect]
     Active Substance: INFLIXIMAB
     Dosage: UNK
  262. REMICADE [Suspect]
     Active Substance: INFLIXIMAB
     Dosage: UNK
  263. REMICADE [Suspect]
     Active Substance: INFLIXIMAB
     Dosage: UNK
  264. REMICADE [Suspect]
     Active Substance: INFLIXIMAB
     Dosage: UNK
  265. REMICADE [Suspect]
     Active Substance: INFLIXIMAB
     Dosage: UNK
  266. ACETAMINOPHEN [Suspect]
     Active Substance: ACETAMINOPHEN
     Indication: Product used for unknown indication
     Dosage: UNK
  267. FOSAMAX [Suspect]
     Active Substance: ALENDRONATE SODIUM
     Indication: Rheumatoid arthritis
     Dosage: UNK
  268. FOSAMAX [Suspect]
     Active Substance: ALENDRONATE SODIUM
     Indication: Product used for unknown indication
     Dosage: UNK
  269. FOSAMAX [Suspect]
     Active Substance: ALENDRONATE SODIUM
     Dosage: UNK
  270. FOSAMAX [Suspect]
     Active Substance: ALENDRONATE SODIUM
     Dosage: UNK
  271. FOSAMAX [Suspect]
     Active Substance: ALENDRONATE SODIUM
     Dosage: UNK
  272. FOSAMAX [Suspect]
     Active Substance: ALENDRONATE SODIUM
     Dosage: UNK
  273. FOSAMAX [Suspect]
     Active Substance: ALENDRONATE SODIUM
     Dosage: UNK
  274. FOSAMAX [Suspect]
     Active Substance: ALENDRONATE SODIUM
     Dosage: UNK
  275. ACETAMINOPHEN [Suspect]
     Active Substance: ACETAMINOPHEN
     Indication: Rheumatoid arthritis
     Dosage: UNK
  276. ACETAMINOPHEN [Suspect]
     Active Substance: ACETAMINOPHEN
     Indication: Product used for unknown indication
     Dosage: UNK
  277. DICLOFENAC [Suspect]
     Active Substance: DICLOFENAC
     Indication: Product used for unknown indication
     Dosage: ROUTE: UNKNOWN
  278. DICLOFENAC [Suspect]
     Active Substance: DICLOFENAC
     Indication: Rheumatoid arthritis
     Dosage: ROUTE: UNKNOWN
  279. DICLOFENAC [Suspect]
     Active Substance: DICLOFENAC
     Indication: Osteoarthritis
     Dosage: ROUTE: UNKNOWN
  280. DICLOFENAC [Suspect]
     Active Substance: DICLOFENAC
     Indication: Inflammation
     Dosage: ROUTE: UNKNOWN
  281. XELJANZ [Suspect]
     Active Substance: TOFACITINIB CITRATE
     Indication: Rheumatoid arthritis
     Dosage: 5 MG
  282. XELJANZ [Suspect]
     Active Substance: TOFACITINIB CITRATE
     Dosage: 5 MG, BID
  283. XELJANZ [Suspect]
     Active Substance: TOFACITINIB CITRATE
     Dosage: UNK
  284. CETIRIZINE HYDROCHLORIDE [Suspect]
     Active Substance: CETIRIZINE HYDROCHLORIDE
     Indication: Rheumatoid arthritis
     Dosage: 10 MG, QD
  285. CETIRIZINE HYDROCHLORIDE [Suspect]
     Active Substance: CETIRIZINE HYDROCHLORIDE
     Dosage: 25 MG
  286. CETIRIZINE HYDROCHLORIDE [Suspect]
     Active Substance: CETIRIZINE HYDROCHLORIDE
     Dosage: 10 MG
  287. CETIRIZINE HYDROCHLORIDE [Suspect]
     Active Substance: CETIRIZINE HYDROCHLORIDE
     Dosage: UNK
  288. ALENDRONATE SODIUM\CHOLECALCIFEROL [Suspect]
     Active Substance: ALENDRONATE SODIUM\CHOLECALCIFEROL
     Indication: Rheumatoid arthritis
     Dosage: UNK
  289. ALENDRONATE SODIUM\CHOLECALCIFEROL [Suspect]
     Active Substance: ALENDRONATE SODIUM\CHOLECALCIFEROL
     Dosage: UNK
  290. ALENDRONATE SODIUM\CHOLECALCIFEROL [Suspect]
     Active Substance: ALENDRONATE SODIUM\CHOLECALCIFEROL
     Dosage: UNK
  291. ALENDRONATE SODIUM\CHOLECALCIFEROL [Suspect]
     Active Substance: ALENDRONATE SODIUM\CHOLECALCIFEROL
     Dosage: UNK
  292. ENBREL [Suspect]
     Active Substance: ETANERCEPT
     Indication: Rheumatoid arthritis
     Dosage: UNK
  293. ENBREL [Suspect]
     Active Substance: ETANERCEPT
     Indication: Psoriatic arthropathy
     Dosage: UNK
  294. ENBREL [Suspect]
     Active Substance: ETANERCEPT
     Dosage: UNK
  295. ENBREL [Suspect]
     Active Substance: ETANERCEPT
     Dosage: 50 MG (1 WEEK) (50 MG, QW)
  296. ENBREL [Suspect]
     Active Substance: ETANERCEPT
     Dosage: UNK
  297. ENBREL [Suspect]
     Active Substance: ETANERCEPT
     Dosage: UNK
  298. COSENTYX [Suspect]
     Active Substance: SECUKINUMAB
     Indication: Rheumatoid arthritis
     Dosage: UNK
  299. COSENTYX [Suspect]
     Active Substance: SECUKINUMAB
     Indication: Psoriatic arthropathy
     Dosage: UNK
  300. COSENTYX [Suspect]
     Active Substance: SECUKINUMAB
     Dosage: UNK
  301. COSENTYX [Suspect]
     Active Substance: SECUKINUMAB
     Dosage: UNK
  302. COSENTYX [Suspect]
     Active Substance: SECUKINUMAB
     Dosage: UNK
  303. COSENTYX [Suspect]
     Active Substance: SECUKINUMAB
     Dosage: UNK
  304. COSENTYX [Suspect]
     Active Substance: SECUKINUMAB
     Dosage: UNK
  305. ALENDRONIC ACID [Suspect]
     Active Substance: ALENDRONIC ACID
     Indication: Rheumatoid arthritis
     Dosage: UNK
  306. HYDROXYCHLOROQUINE [Suspect]
     Active Substance: HYDROXYCHLOROQUINE
     Indication: Rheumatoid arthritis
     Dosage: 400 MG
  307. HYDROXYCHLOROQUINE [Suspect]
     Active Substance: HYDROXYCHLOROQUINE
     Dosage: UNK
  308. HYDROXYCHLOROQUINE [Suspect]
     Active Substance: HYDROXYCHLOROQUINE
     Dosage: 40 MG
  309. CERTOLIZUMAB PEGOL [Suspect]
     Active Substance: CERTOLIZUMAB PEGOL
     Indication: Rheumatoid arthritis
     Dosage: UNK
  310. CERTOLIZUMAB PEGOL [Suspect]
     Active Substance: CERTOLIZUMAB PEGOL
     Dosage: UNK
  311. CERTOLIZUMAB PEGOL [Suspect]
     Active Substance: CERTOLIZUMAB PEGOL
     Dosage: UNK
  312. ERELZI [Suspect]
     Active Substance: ETANERCEPT-SZZS
     Indication: Rheumatoid arthritis
     Dosage: UNK
  313. ERELZI [Suspect]
     Active Substance: ETANERCEPT-SZZS
     Dosage: UNK
  314. ERELZI [Suspect]
     Active Substance: ETANERCEPT-SZZS
     Dosage: UNK
  315. ERELZI [Suspect]
     Active Substance: ETANERCEPT-SZZS
     Dosage: UNK
  316. ERELZI [Suspect]
     Active Substance: ETANERCEPT-SZZS
     Dosage: UNK
  317. ERELZI [Suspect]
     Active Substance: ETANERCEPT-SZZS
     Dosage: UNK
  318. ERELZI [Suspect]
     Active Substance: ETANERCEPT-SZZS
     Dosage: UNK
  319. CETIRIZINE HYDROCHLORIDE\PSEUDOEPHEDRINE HYDROCHLORIDE [Suspect]
     Active Substance: CETIRIZINE HYDROCHLORIDE\PSEUDOEPHEDRINE HYDROCHLORIDE
     Indication: Rheumatoid arthritis
     Dosage: 25 MG
  320. CETIRIZINE HYDROCHLORIDE\PSEUDOEPHEDRINE HYDROCHLORIDE [Suspect]
     Active Substance: CETIRIZINE HYDROCHLORIDE\PSEUDOEPHEDRINE HYDROCHLORIDE
     Indication: Off label use
     Dosage: UNK
  321. CETIRIZINE HYDROCHLORIDE\PSEUDOEPHEDRINE HYDROCHLORIDE [Suspect]
     Active Substance: CETIRIZINE HYDROCHLORIDE\PSEUDOEPHEDRINE HYDROCHLORIDE
     Dosage: 5 MG
  322. CETIRIZINE HYDROCHLORIDE\PSEUDOEPHEDRINE HYDROCHLORIDE [Suspect]
     Active Substance: CETIRIZINE HYDROCHLORIDE\PSEUDOEPHEDRINE HYDROCHLORIDE
     Dosage: UNK
  323. CETIRIZINE HYDROCHLORIDE\PSEUDOEPHEDRINE HYDROCHLORIDE [Suspect]
     Active Substance: CETIRIZINE HYDROCHLORIDE\PSEUDOEPHEDRINE HYDROCHLORIDE
  324. HYALURONIDASE (HUMAN RECOMBINANT) [Suspect]
     Active Substance: HYALURONIDASE (HUMAN RECOMBINANT)
     Indication: Rheumatoid arthritis
     Dosage: UNK
  325. HYALURONIDASE (HUMAN RECOMBINANT) [Suspect]
     Active Substance: HYALURONIDASE (HUMAN RECOMBINANT)
     Indication: Product used for unknown indication
     Dosage: UNK
  326. HYALURONIDASE (HUMAN RECOMBINANT) [Suspect]
     Active Substance: HYALURONIDASE (HUMAN RECOMBINANT)
     Dosage: UNK
  327. HYALURONIDASE (HUMAN RECOMBINANT) [Suspect]
     Active Substance: HYALURONIDASE (HUMAN RECOMBINANT)
     Dosage: UNK
  328. HYALURONIDASE (HUMAN RECOMBINANT) [Suspect]
     Active Substance: HYALURONIDASE (HUMAN RECOMBINANT)
     Dosage: UNK
  329. SULFASALAZINE [Suspect]
     Active Substance: SULFASALAZINE
     Indication: Rheumatoid arthritis
     Dosage: 300 MG, QD
  330. SULFASALAZINE [Suspect]
     Active Substance: SULFASALAZINE
     Dosage: 1 G, QD
  331. SULFASALAZINE [Suspect]
     Active Substance: SULFASALAZINE
     Dosage: 1 G, BID
  332. SULFASALAZINE [Suspect]
     Active Substance: SULFASALAZINE
     Dosage: UNK UNK, BID
  333. SULFASALAZINE [Suspect]
     Active Substance: SULFASALAZINE
     Dosage: 1000 MG, BID
  334. SULFASALAZINE [Suspect]
     Active Substance: SULFASALAZINE
     Dosage: 500 MG
  335. SULFASALAZINE [Suspect]
     Active Substance: SULFASALAZINE
     Dosage: 1 DF, BID
  336. SULFASALAZINE [Suspect]
     Active Substance: SULFASALAZINE
     Dosage: UNK
  337. SULFASALAZINE [Suspect]
     Active Substance: SULFASALAZINE
     Dosage: 2 G, BID
  338. SULFASALAZINE [Suspect]
     Active Substance: SULFASALAZINE
     Dosage: 1 DF
  339. SULFASALAZINE [Suspect]
     Active Substance: SULFASALAZINE
  340. ORENCIA [Suspect]
     Active Substance: ABATACEPT
     Indication: Rheumatoid arthritis
     Dosage: UNK
  341. CHOLECALCIFEROL [Suspect]
     Active Substance: CHOLECALCIFEROL
     Indication: Product used for unknown indication
     Dosage: UNK
  342. ADALIMUMAB [Suspect]
     Active Substance: ADALIMUMAB
     Indication: Rheumatoid arthritis
     Dosage: UNK
  343. METHOTREXATE [Suspect]
     Active Substance: METHOTREXATE
     Indication: Rheumatoid arthritis
     Dosage: 25 MG (1 WEEK) (25 MG, QW)
  344. METHOTREXATE [Suspect]
     Active Substance: METHOTREXATE
     Dosage: 25 MG (1 WEEK) (25 MG, QW)
  345. METHOTREXATE [Suspect]
     Active Substance: METHOTREXATE
     Dosage: 20 MG, QD
  346. METHOTREXATE [Suspect]
     Active Substance: METHOTREXATE
     Dosage: 25 MG, BID
  347. METHOTREXATE [Suspect]
     Active Substance: METHOTREXATE
     Dosage: 1 G, BID
  348. HYDROCORTISONE ACETATE [Suspect]
     Active Substance: HYDROCORTISONE ACETATE
     Indication: Rheumatoid arthritis
     Dosage: UNK
  349. HYDROCORTISONE ACETATE [Suspect]
     Active Substance: HYDROCORTISONE ACETATE
     Indication: Product used for unknown indication
     Dosage: UNK
  350. HYDROCORTISONE ACETATE [Suspect]
     Active Substance: HYDROCORTISONE ACETATE
     Dosage: UNK
  351. HYDROCORTISONE ACETATE [Suspect]
     Active Substance: HYDROCORTISONE ACETATE
     Dosage: UNK
  352. HYDROCORTISONE ACETATE [Suspect]
     Active Substance: HYDROCORTISONE ACETATE
     Dosage: UNK
  353. HYDROCORTISONE ACETATE [Suspect]
     Active Substance: HYDROCORTISONE ACETATE
     Dosage: UNK
  354. HYDROCORTISONE ACETATE [Suspect]
     Active Substance: HYDROCORTISONE ACETATE
     Dosage: UNK
  355. ACTEMRA [Suspect]
     Active Substance: TOCILIZUMAB
     Indication: Rheumatoid arthritis
     Dosage: UNK
  356. ACTEMRA [Suspect]
     Active Substance: TOCILIZUMAB
     Dosage: ROUTE: TOPICAL
  357. ACTEMRA [Suspect]
     Active Substance: TOCILIZUMAB
     Dosage: UNK
  358. ACTEMRA [Suspect]
     Active Substance: TOCILIZUMAB
  359. ACTEMRA [Suspect]
     Active Substance: TOCILIZUMAB
  360. ACTEMRA [Suspect]
     Active Substance: TOCILIZUMAB
     Dosage: 728 MG (4 WEEKS) (Q4W (NOT OTHERWISE SPECIFIED))
  361. ACTEMRA [Suspect]
     Active Substance: TOCILIZUMAB
     Dosage: UNK (NOT OTHERWISE SPECIFIED)
  362. ACTEMRA [Suspect]
     Active Substance: TOCILIZUMAB
     Dosage: UNK
  363. ACTEMRA [Suspect]
     Active Substance: TOCILIZUMAB
     Dosage: 752.8 MG (4 WEEKS) (Q4W (NOT OTHERWISE SPECIFIED))
  364. RISEDRONATE SODIUM [Suspect]
     Active Substance: RISEDRONATE SODIUM
     Indication: Product used for unknown indication
     Dosage: 1 DF
  365. RISEDRONATE SODIUM [Suspect]
     Active Substance: RISEDRONATE SODIUM
     Dosage: UNK
  366. LYRICA [Suspect]
     Active Substance: PREGABALIN
     Indication: Product used for unknown indication
     Dosage: UNK
  367. APREMILAST [Suspect]
     Active Substance: APREMILAST
     Indication: Product used for unknown indication
     Dosage: UNK
  368. APREMILAST [Suspect]
     Active Substance: APREMILAST
  369. APREMILAST [Suspect]
     Active Substance: APREMILAST
  370. ALENDRONATE SODIUM [Suspect]
     Active Substance: ALENDRONATE SODIUM
     Indication: Rheumatoid arthritis
     Dosage: UNK
  371. ALENDRONATE SODIUM [Suspect]
     Active Substance: ALENDRONATE SODIUM
     Dosage: UNK
  372. ALENDRONATE SODIUM [Suspect]
     Active Substance: ALENDRONATE SODIUM
     Dosage: UNK
  373. ACETAMINOPHEN\OXYCODONE HYDROCHLORIDE [Suspect]
     Active Substance: ACETAMINOPHEN\OXYCODONE HYDROCHLORIDE
     Indication: Product used for unknown indication
     Dosage: UNK
  374. ARAVA [Suspect]
     Active Substance: LEFLUNOMIDE
     Indication: Rheumatoid arthritis
     Dosage: 20 MG
  375. ARAVA [Suspect]
     Active Substance: LEFLUNOMIDE
     Dosage: UNK
  376. ARAVA [Suspect]
     Active Substance: LEFLUNOMIDE
     Dosage: UNK
  377. ARAVA [Suspect]
     Active Substance: LEFLUNOMIDE
     Dosage: UNK
  378. VOLTAREN [Suspect]
     Active Substance: DICLOFENAC SODIUM
     Indication: Product used for unknown indication
     Dosage: ROUTE: UNKNOWN
  379. PREDNISONE [Suspect]
     Active Substance: PREDNISONE
     Indication: Rheumatoid arthritis
     Dosage: 1 MG
  380. PREDNISONE [Suspect]
     Active Substance: PREDNISONE
     Dosage: 5 MG
  381. PREDNISONE [Suspect]
     Active Substance: PREDNISONE
  382. PREDNISONE [Suspect]
     Active Substance: PREDNISONE
  383. PREDNISONE [Suspect]
     Active Substance: PREDNISONE
  384. PREDNISONE [Suspect]
     Active Substance: PREDNISONE
  385. PREDNISONE [Suspect]
     Active Substance: PREDNISONE

REACTIONS (23)
  - Deep vein thrombosis postoperative [Fatal]
  - Facet joint syndrome [Fatal]
  - Grip strength decreased [Fatal]
  - Gait inability [Fatal]
  - General physical health deterioration [Fatal]
  - Gastrointestinal disorder [Fatal]
  - Discomfort [Fatal]
  - Glossodynia [Fatal]
  - Dizziness [Fatal]
  - Drug intolerance [Fatal]
  - Diarrhoea [Fatal]
  - Gait disturbance [Fatal]
  - Drug hypersensitivity [Fatal]
  - Duodenal ulcer perforation [Fatal]
  - Decreased appetite [Fatal]
  - Contraindicated product administered [Fatal]
  - Confusional state [Fatal]
  - Dry mouth [Fatal]
  - Depression [Fatal]
  - Delirium [Fatal]
  - Dyspepsia [Fatal]
  - Dislocation of vertebra [Fatal]
  - Dyspnoea [Fatal]
